FAERS Safety Report 11488848 (Version 7)
Quarter: 2015Q4

REPORT INFORMATION
  Report Type: Spontaneous
  Country: BR (occurrence: BR)
  Receive Date: 20150909
  Receipt Date: 20151019
  Transmission Date: 20160304
  Serious: Yes (Life-Threatening)
  Sender: FDA-Public Use
  Company Number: PHHY2015BR108523

PATIENT
  Age: 45 Year
  Sex: Female

DRUGS (4)
  1. PREDNISOLONE. [Suspect]
     Active Substance: PREDNISOLONE
     Indication: HORMONE REPLACEMENT THERAPY
     Route: 065
  2. SANDOSTATIN [Suspect]
     Active Substance: OCTREOTIDE ACETATE
     Indication: NEOPLASM
     Route: 065
  3. FLUDROCORTISONE [Suspect]
     Active Substance: FLUDROCORTISONE
     Indication: NEOPLASM
     Route: 065
  4. CABERGOLINE. [Suspect]
     Active Substance: CABERGOLINE
     Indication: NEOPLASM
     Route: 065

REACTIONS (21)
  - General physical health deterioration [Unknown]
  - Hypersensitivity [Unknown]
  - Pancreatic cyst [Unknown]
  - Abdominal distension [Unknown]
  - Adrenal disorder [Unknown]
  - Muscle disorder [Unknown]
  - Gait disturbance [Unknown]
  - Localised infection [Unknown]
  - Drug hypersensitivity [Unknown]
  - Pituitary-dependent Cushing^s syndrome [Unknown]
  - Eating disorder [Unknown]
  - Pancreatic neoplasm [Unknown]
  - Fall [Unknown]
  - Autoimmune thyroiditis [Unknown]
  - Drug-induced liver injury [Unknown]
  - Malnutrition [Unknown]
  - Myalgia [Unknown]
  - Movement disorder [Unknown]
  - Weight increased [Unknown]
  - Apparent death [Unknown]
  - Limb injury [Recovering/Resolving]
